FAERS Safety Report 4421670-8 (Version None)
Quarter: 2004Q3

REPORT INFORMATION
  Report Type: 
  Country: None (occurrence: None)
  Receive Date: 20040809
  Receipt Date: 20040809
  Transmission Date: 20050211
  Serious: Yes (Other)
  Sender: FDA-Public Use
  Company Number: None

PATIENT
  Age: 19 Year
  Sex: Female
  Weight: 65.318 kg

DRUGS (1)
  1. DEPAKOTE [Suspect]
     Indication: CONVULSION
     Dosage: 100 MG DAILY
     Dates: start: 20000101, end: 20020101

REACTIONS (5)
  - ABNORMAL BEHAVIOUR [None]
  - DENTAL CARIES [None]
  - DYSTONIA [None]
  - MOOD ALTERED [None]
  - MOVEMENT DISORDER [None]
